FAERS Safety Report 9695069 (Version 2)
Quarter: 2013Q4

REPORT INFORMATION
  Report Type: Spontaneous
  Country: DE (occurrence: DE)
  Receive Date: 20131119
  Receipt Date: 20131129
  Transmission Date: 20140711
  Serious: Yes (Hospitalization, Other)
  Sender: FDA-Public Use
  Company Number: PHHY2013DE131194

PATIENT
  Sex: Male

DRUGS (3)
  1. GILENYA [Suspect]
     Indication: MULTIPLE SCLEROSIS
     Dosage: 0.5 MG, QD
     Route: 048
     Dates: start: 2013
  2. ZOPICLONE [Concomitant]
     Indication: INSOMNIA
     Dosage: 7.5 MG, UNK
     Route: 048
     Dates: end: 20131025
  3. DIAZEPAM [Concomitant]
     Indication: ANXIETY
     Dosage: 10 MG, UNK
     Route: 048
     Dates: end: 20131025

REACTIONS (1)
  - Psychotic disorder [Recovered/Resolved]
